FAERS Safety Report 7287528-4 (Version None)
Quarter: 2011Q1

REPORT INFORMATION
  Report Type: 
  Country: None (occurrence: None)
  Receive Date: 20110211
  Receipt Date: 20110203
  Transmission Date: 20110831
  Serious: Yes (Other)
  Sender: FDA-Public Use
  Company Number: US-NOVOPROD-308592

PATIENT
  Age: 49 Year
  Sex: Female
  Weight: 128.35 kg

DRUGS (11)
  1. ALLEGRA [Concomitant]
     Dosage: 60 MG, BID
     Dates: start: 20100614
  2. LORTAB [Concomitant]
     Dosage: 5/500, 1-2 TAB,  EVERY 6 HOURS PRN
     Dates: start: 20100412
  3. FORTAMET [Concomitant]
     Dosage: 500 MG, QD
     Dates: start: 20100614
  4. ZOCOR [Concomitant]
     Dosage: 1 TAB, QD AT BEDTIME
     Dates: start: 20100614
  5. VITAMIIN C [Concomitant]
     Dosage: 1 UNK, QD
     Dates: start: 20090224
  6. VICTOZA [Suspect]
     Dosage: 1.2 MG, QD
     Route: 058
     Dates: start: 20100419, end: 20100425
  7. VICTOZA [Suspect]
     Dosage: 1.8 MG, QD
     Route: 058
     Dates: start: 20100426, end: 20100512
  8. CALCIUM +D [Concomitant]
     Dosage: 1 UNK, BID
     Dates: start: 20100618
  9. VICTOZA [Suspect]
     Indication: TYPE 2 DIABETES MELLITUS
     Dosage: 0.6 MG, QD
     Route: 058
     Dates: start: 20100412, end: 20100418
  10. VICTOZA [Suspect]
     Dosage: 0.6 MG, QD
     Route: 058
     Dates: start: 20100614
  11. HYZAAR                             /01284801/ [Concomitant]
     Dosage: 100/25, QD
     Dates: start: 20100614

REACTIONS (2)
  - THYROID CANCER [None]
  - GOITRE [None]
